FAERS Safety Report 19844429 (Version 2)
Quarter: 2021Q3

REPORT INFORMATION
  Report Type: Spontaneous
  Country: US (occurrence: US)
  Receive Date: 20210916
  Receipt Date: 20210927
  Transmission Date: 20211014
  Serious: Yes (Death, Hospitalization)
  Sender: FDA-Public Use
  Company Number: US-TEVA-2021-US-1952563

PATIENT
  Age: 14 Year
  Sex: Male

DRUGS (5)
  1. MANNITOL. [Suspect]
     Active Substance: MANNITOL
     Indication: ACUTE HAEMORRHAGIC LEUKOENCEPHALITIS
     Route: 042
  2. HYPERTONIC SALINE [Suspect]
     Active Substance: SODIUM CHLORIDE
     Indication: ACUTE HAEMORRHAGIC LEUKOENCEPHALITIS
     Route: 065
  3. METHYLPREDNISOLONE. [Suspect]
     Active Substance: METHYLPREDNISOLONE
     Indication: ACUTE HAEMORRHAGIC LEUKOENCEPHALITIS
     Dosage: 1 GRAM DAILY;
     Route: 042
  4. IV IMMUNE GLOBULIN [Suspect]
     Active Substance: HUMAN IMMUNOGLOBULIN G
     Indication: ACUTE HAEMORRHAGIC LEUKOENCEPHALITIS
     Dosage: 400 MG/KG DAILY;
     Route: 042
  5. GARDASIL [Suspect]
     Active Substance: HUMAN PAPILLOMAVIRUS QUADRIVALENT (TYPES 6, 11, 16, AND 18) VACCINE, RECOMBINANT
     Indication: IMMUNISATION
     Dosage: GARDASIL 9
     Route: 030

REACTIONS (4)
  - Brain oedema [Fatal]
  - Brain herniation [Fatal]
  - Drug ineffective [Fatal]
  - Acute haemorrhagic leukoencephalitis [Fatal]
